FAERS Safety Report 6793373-6 (Version None)
Quarter: 2010Q2

REPORT INFORMATION
  Report Type: 
  Country: None (occurrence: None)
  Receive Date: 20100624
  Receipt Date: 20100107
  Transmission Date: 20101027
  Serious: Yes (Other)
  Sender: FDA-Public Use
  Company Number: US-MYLANLABS-2010S1000331

PATIENT
  Age: 29 Year
  Sex: Female

DRUGS (3)
  1. CLOZAPINE [Suspect]
     Route: 048
     Dates: start: 20091201, end: 20091201
  2. IMIPRAMINE [Concomitant]
     Route: 048
  3. HYDROXYZINE PAMOATE [Concomitant]
     Dosage: 75MG Q4HRS AND 25MG PRN
     Route: 048

REACTIONS (2)
  - GRANULOCYTOPENIA [None]
  - WHITE BLOOD CELL COUNT DECREASED [None]
